FAERS Safety Report 10205166 (Version 1)
Quarter: 2014Q2

REPORT INFORMATION
  Report Type: Report from Study
  Country: US (occurrence: US)
  Receive Date: 20140529
  Receipt Date: 20140529
  Transmission Date: 20141212
  Serious: Yes (Hospitalization)
  Sender: FDA-Public Use
  Company Number: US-JNJFOC-20140518690

PATIENT
  Sex: Male
  Weight: 95.2 kg

DRUGS (17)
  1. IMBRUVICA [Suspect]
     Indication: CHRONIC LYMPHOCYTIC LEUKAEMIA
     Route: 048
     Dates: start: 20140521
  2. IMBRUVICA [Suspect]
     Indication: CHRONIC LYMPHOCYTIC LEUKAEMIA
     Route: 048
     Dates: start: 201401, end: 20140128
  3. FOLIC ACID [Concomitant]
     Dates: start: 20131224
  4. OFLOXACIN [Concomitant]
     Route: 047
     Dates: start: 20140224
  5. SODIUM BICARBONATE [Concomitant]
     Dates: start: 20130624
  6. NORVASC [Concomitant]
     Dates: start: 20140224
  7. REFRESH TEARS [Concomitant]
     Dates: start: 20140224
  8. PENICILLIN V POTASSIUM [Concomitant]
     Dates: start: 20131224
  9. CALTRATE [Concomitant]
     Dates: start: 20131224
  10. ULORIC [Concomitant]
     Dates: start: 20140224
  11. BACTRIM DS [Concomitant]
     Dates: start: 20140224
  12. VALTREX [Concomitant]
     Dates: start: 20140224
  13. METFORMIN [Concomitant]
     Dates: start: 20140224
  14. PROTONIX [Concomitant]
     Dates: start: 20140224
  15. MAGNESIUM PHOSPHATE [Concomitant]
     Dates: start: 20140224
  16. SILICON DIOXIDE, COLLOIDAL [Concomitant]
     Dates: start: 20140224
  17. SODIUM SULFATE [Concomitant]
     Dates: start: 20140224

REACTIONS (1)
  - Haemolytic anaemia [Unknown]
